FAERS Safety Report 4728775-2 (Version None)
Quarter: 2005Q3

REPORT INFORMATION
  Report Type: 
  Country: None (occurrence: None)
  Receive Date: 20050728
  Receipt Date: 20050119
  Transmission Date: 20060218
  Serious: Yes (Other)
  Sender: FDA-Public Use
  Company Number: TRP_0058_2005

PATIENT
  Age: 43 Year
  Sex: Female

DRUGS (2)
  1. RIBASPHERE [Suspect]
     Indication: HEPATITIS C
     Dosage: DF, PO
     Route: 048
     Dates: start: 20041201, end: 20041224
  2. PEG-INTRON [Suspect]
     Indication: HEPATITIS C
     Dosage: DF, SC
     Route: 058
     Dates: start: 20040130, end: 20041224

REACTIONS (1)
  - THYROID DISORDER [None]
